FAERS Safety Report 9733933 (Version 1)
Quarter: 2013Q4

REPORT INFORMATION
  Report Type: Spontaneous
  Country: US (occurrence: US)
  Receive Date: 20131205
  Receipt Date: 20131205
  Transmission Date: 20140711
  Serious: Yes (Other)
  Sender: FDA-Public Use
  Company Number: PHHY2013US137994

PATIENT
  Age: 21 Year
  Sex: Male

DRUGS (12)
  1. BACLOFEN INTRATHECAL [Suspect]
     Indication: MUSCLE SPASTICITY
     Dosage: UNK UKN, UNK
     Route: 037
     Dates: start: 20120727
  2. BACLOFEN [Suspect]
     Dosage: UNK UKN, UNK
     Route: 048
  3. METOCLOPRAMIDE SANDOZ [Suspect]
     Dosage: UNK UKN, UNK
  4. ALBUTEROL SULFATE TABLETS USP [Suspect]
     Dosage: UNK UKN, UNK
  5. FLUOXETINE [Suspect]
     Dosage: UNK UKN, UNK
  6. LORAZEPAM [Suspect]
     Dosage: UNK UKN, UNK
  7. CIPROFLOXACIN [Suspect]
     Dosage: UNK UKN, UNK
  8. PERCOCET [Suspect]
     Dosage: UNK UKN, UNK
  9. MILK OF MAGNESIA [Suspect]
     Dosage: UNK UKN, UNK
  10. COLACE [Suspect]
     Dosage: UNK UKN, UNK
  11. SENOKOT /UNK/ [Suspect]
     Dosage: UNK UKN, UNK
  12. MIDAZOLAM [Suspect]
     Dosage: UNK UKN, UNK

REACTIONS (5)
  - Pseudomonas infection [Recovered/Resolved]
  - Infusion site erythema [Unknown]
  - Implant site extravasation [Unknown]
  - Infusion site swelling [Unknown]
  - Cerebrospinal fluid leakage [Unknown]
